FAERS Safety Report 18038826 (Version 1)
Quarter: 2020Q3

REPORT INFORMATION
  Report Type: Spontaneous
  Country: US (occurrence: US)
  Receive Date: 20200717
  Receipt Date: 20200717
  Transmission Date: 20201103
  Serious: Yes (Other)
  Sender: FDA-Public Use
  Company Number: US-ASTRAZENECA-2020SE87619

PATIENT
  Age: 19656 Day
  Sex: Female
  Weight: 58 kg

DRUGS (1)
  1. LYNPARZA [Suspect]
     Active Substance: OLAPARIB
     Indication: BREAST CANCER STAGE III
     Route: 048
     Dates: start: 2020

REACTIONS (9)
  - Tremor [Not Recovered/Not Resolved]
  - Presyncope [Not Recovered/Not Resolved]
  - Heart rate increased [Not Recovered/Not Resolved]
  - Hypoaesthesia [Unknown]
  - Vomiting [Not Recovered/Not Resolved]
  - Blood electrolytes decreased [Unknown]
  - Blood sodium decreased [Unknown]
  - Syncope [Unknown]
  - Vision blurred [Not Recovered/Not Resolved]

NARRATIVE: CASE EVENT DATE: 20200703
